FAERS Safety Report 10238617 (Version 1)
Quarter: 2014Q2

REPORT INFORMATION
  Report Type: Spontaneous
  Country: US (occurrence: US)
  Receive Date: 20140616
  Receipt Date: 20140616
  Transmission Date: 20141212
  Serious: No
  Sender: FDA-Public Use
  Company Number: US-ASTRAZENECA-2014SE39533

PATIENT
  Age: 37 Year
  Sex: Male
  Weight: 77.1 kg

DRUGS (2)
  1. NEXIUM [Suspect]
     Indication: GASTROOESOPHAGEAL REFLUX DISEASE
     Route: 048
     Dates: start: 2010, end: 2013
  2. ADVIL [Concomitant]
     Dosage: PRN
     Route: 048

REACTIONS (3)
  - Seborrhoeic dermatitis [Unknown]
  - Therapeutic response changed [Unknown]
  - Drug dose omission [Unknown]
